FAERS Safety Report 15060433 (Version 1)
Quarter: 2018Q2

REPORT INFORMATION
  Report Type: Spontaneous
  Country: PH (occurrence: PH)
  Receive Date: 20180625
  Receipt Date: 20180625
  Transmission Date: 20180711
  Serious: Yes (Life-Threatening, Hospitalization, Other)
  Sender: FDA-Public Use
  Company Number: PH-OTSUKA-2018_017298

PATIENT
  Sex: Male

DRUGS (1)
  1. SAMSCA [Suspect]
     Active Substance: TOLVAPTAN
     Indication: HYPONATRAEMIA
     Dosage: 7.5 MG, QD
     Route: 048

REACTIONS (3)
  - Urine output increased [Unknown]
  - Rapid correction of hyponatraemia [Unknown]
  - Underdose [Unknown]

NARRATIVE: CASE EVENT DATE: 201806
